FAERS Safety Report 23905951 (Version 1)
Quarter: 2024Q2

REPORT INFORMATION
  Report Type: Spontaneous
  Country: JP (occurrence: JP)
  Receive Date: 20240527
  Receipt Date: 20240527
  Transmission Date: 20240715
  Serious: Yes (Other)
  Sender: FDA-Public Use
  Company Number: JP-002147023-NVSJ2024JP006133

PATIENT
  Age: 72 Year
  Sex: Male

DRUGS (6)
  1. DABRAFENIB [Suspect]
     Active Substance: DABRAFENIB
     Indication: Lung adenocarcinoma stage IV
     Dosage: 300 MG
     Route: 048
  2. DABRAFENIB [Suspect]
     Active Substance: DABRAFENIB
     Dosage: UNK
     Route: 048
  3. DABRAFENIB [Suspect]
     Active Substance: DABRAFENIB
     Dosage: MINIMUM DOSE
     Route: 048
  4. TRAMETINIB [Suspect]
     Active Substance: TRAMETINIB
     Indication: Lung adenocarcinoma stage IV
     Dosage: 2 MG
     Route: 048
  5. TRAMETINIB [Suspect]
     Active Substance: TRAMETINIB
     Dosage: UNK
     Route: 048
  6. TRAMETINIB [Suspect]
     Active Substance: TRAMETINIB
     Dosage: MINIMUM DOSE
     Route: 048

REACTIONS (3)
  - Organising pneumonia [Recovering/Resolving]
  - Pyrexia [Recovering/Resolving]
  - Cough [Recovering/Resolving]
